FAERS Safety Report 5179158-5 (Version None)
Quarter: 2006Q4

REPORT INFORMATION
  Report Type: 
  Country: None (occurrence: None)
  Receive Date: 20061211
  Receipt Date: 20061130
  Transmission Date: 20070319
  Serious: Yes (Hospitalization, Other)
  Sender: FDA-Public Use
  Company Number: 2006AP001082

PATIENT
  Age: 31 Year
  Sex: Female

DRUGS (4)
  1. PAROXETINE HYDROCHLORIDE [Suspect]
  2. BUPROPION HCL [Suspect]
  3. CLONAZEPAM [Suspect]
  4. DULOXETINE HYDROCHLORIDE [Suspect]

REACTIONS (4)
  - ACUTE MYOCARDIAL INFARCTION [None]
  - ARTERIOSPASM CORONARY [None]
  - DRUG INTERACTION [None]
  - SEROTONIN SYNDROME [None]
